FAERS Safety Report 6298320-1 (Version None)
Quarter: 2009Q3

REPORT INFORMATION
  Report Type: 
  Country: None (occurrence: None)
  Receive Date: 20090805
  Receipt Date: 20090724
  Transmission Date: 20100115
  Serious: Yes (Hospitalization, Other)
  Sender: FDA-Public Use
  Company Number: PHHY2009FR26906

PATIENT
  Sex: Female
  Weight: 65 kg

DRUGS (8)
  1. ACLASTA [Suspect]
     Indication: OSTEOPOROSIS
     Dosage: UNK
     Dates: start: 20090617
  2. SINTROM [Suspect]
     Indication: ATRIAL FIBRILLATION
     Dosage: UNK
     Dates: start: 20090105
  3. SINTROM [Suspect]
     Dosage: UNK
  4. EXELON [Concomitant]
     Indication: DEMENTIA ALZHEIMER'S TYPE
     Dosage: UNK
     Dates: start: 20081001
  5. LASIX [Concomitant]
     Indication: CARDIAC FAILURE
     Dosage: UNK
     Dates: start: 20090105
  6. ATACAND [Concomitant]
     Indication: HYPERTENSION
     Dosage: UNK
     Dates: start: 20090105
  7. ATACAND [Concomitant]
     Indication: CARDIAC FAILURE
  8. TEMERIT [Concomitant]
     Indication: CARDIAC FAILURE
     Dosage: UNK
     Dates: start: 20090105

REACTIONS (9)
  - APHASIA [None]
  - DISORIENTATION [None]
  - HEMIANOPIA [None]
  - INTERNATIONAL NORMALISED RATIO DECREASED [None]
  - MOTOR DYSFUNCTION [None]
  - TRANSIENT ISCHAEMIC ATTACK [None]
  - URINARY TRACT INFECTION [None]
  - VISION BLURRED [None]
  - VISUAL ACUITY REDUCED [None]
